FAERS Safety Report 11359219 (Version 1)
Quarter: 2015Q3

REPORT INFORMATION
  Report Type: Report from Study
  Country: FR (occurrence: FR)
  Receive Date: 20150807
  Receipt Date: 20150807
  Transmission Date: 20151125
  Serious: Yes (Hospitalization)
  Sender: FDA-Public Use
  Company Number: FR-GLAXOSMITHKLINE-FR2015GSK112877

PATIENT
  Age: 5 Decade
  Sex: Male

DRUGS (6)
  1. CARDENSIEL [Concomitant]
     Active Substance: BISOPROLOL FUMARATE
  2. KARDEGIC [Concomitant]
     Active Substance: ASPIRIN LYSINE
  3. PLAVIX [Concomitant]
     Active Substance: CLOPIDOGREL BISULFATE
  4. LESCOL [Concomitant]
     Active Substance: FLUVASTATIN SODIUM
  5. ODRIK [Concomitant]
     Active Substance: TRANDOLAPRIL
  6. OMEGA-3-ACID ETHYL ESTERS. [Suspect]
     Active Substance: OMEGA-3-ACID ETHYL ESTERS
     Indication: ISCHAEMIC HEART DISEASE PROPHYLAXIS
     Dosage: UNK
     Dates: start: 20070915

REACTIONS (1)
  - Arteriogram coronary [Unknown]

NARRATIVE: CASE EVENT DATE: 20081220
